FAERS Safety Report 25839168 (Version 1)
Quarter: 2025Q3

REPORT INFORMATION
  Report Type: Spontaneous
  Country: JP (occurrence: JP)
  Receive Date: 20250924
  Receipt Date: 20250924
  Transmission Date: 20251021
  Serious: Yes (Hospitalization)
  Sender: ALEXION PHARMACEUTICALS
  Company Number: JP-ASTRAZENECA-202509JPN016061JP

PATIENT
  Age: 7 Decade
  Sex: Female

DRUGS (7)
  1. IMFINZI [Suspect]
     Active Substance: DURVALUMAB
     Indication: Hepatocellular carcinoma
     Route: 065
  2. IMJUDO [Suspect]
     Active Substance: TREMELIMUMAB\TREMELIMUMAB-ACTL
     Indication: Hepatocellular carcinoma
     Route: 065
  3. ATEZOLIZUMAB [Concomitant]
     Active Substance: ATEZOLIZUMAB
     Indication: Renal neoplasm
  4. BEVACIZUMAB [Concomitant]
     Active Substance: BEVACIZUMAB
     Indication: Renal neoplasm
  5. LENVATINIB [Concomitant]
     Active Substance: LENVATINIB
  6. CABOZANTINIB [Concomitant]
     Active Substance: CABOZANTINIB
  7. SORAFENIB [Concomitant]
     Active Substance: SORAFENIB

REACTIONS (1)
  - Cytomegalovirus gastrointestinal ulcer [Unknown]
